FAERS Safety Report 24228730 (Version 1)
Quarter: 2024Q3

REPORT INFORMATION
  Report Type: Spontaneous
  Country: US (occurrence: US)
  Receive Date: 20240820
  Receipt Date: 20240820
  Transmission Date: 20241016
  Serious: No
  Sender: SANOFI AVENTIS
  Company Number: US-SA-2024MK000012

PATIENT
  Age: 72 Year
  Sex: Male

DRUGS (2)
  1. AFREZZA [Suspect]
     Active Substance: INSULIN HUMAN
     Indication: Type 2 diabetes mellitus
     Dosage: HE TAKES WHENEVER HIS SUGAR IS HIGH
     Dates: start: 20240203
  2. AFREZZA [Suspect]
     Active Substance: INSULIN HUMAN
     Dosage: HE TAKES WHENEVER HIS SUGAR IS HIGH
     Dates: start: 20240203

REACTIONS (1)
  - Cough [Not Recovered/Not Resolved]

NARRATIVE: CASE EVENT DATE: 20231107
